FAERS Safety Report 9387262 (Version 1)
Quarter: 2013Q3

REPORT INFORMATION
  Report Type: Spontaneous
  Country: IT (occurrence: IT)
  Receive Date: 20130708
  Receipt Date: 20130708
  Transmission Date: 20140515
  Serious: Yes (Other)
  Sender: FDA-Public Use
  Company Number: IT-JNJFOC-20130700229

PATIENT
  Age: 89 Year
  Sex: Male

DRUGS (9)
  1. DUROGESIC [Suspect]
     Indication: ANALGESIC THERAPY
     Route: 062
     Dates: start: 20130604, end: 20130613
  2. COUMADIN [Suspect]
     Indication: ATRIAL FIBRILLATION
     Route: 048
     Dates: start: 20120427, end: 20130613
  3. COUMADIN [Suspect]
     Indication: ATRIAL FIBRILLATION
     Route: 048
  4. TACHIPIRINA [Suspect]
     Indication: ANALGESIC THERAPY
     Route: 048
     Dates: start: 20130604, end: 20130613
  5. MORPHINE HYDROCHLORIDE [Concomitant]
     Indication: PRODUCT USED FOR UNKNOWN INDICATION
     Route: 065
     Dates: start: 20130525, end: 20130603
  6. LOSARTAN POTASSIUM [Concomitant]
     Indication: PRODUCT USED FOR UNKNOWN INDICATION
     Route: 048
  7. PANTOPRAZOLE [Concomitant]
     Indication: PRODUCT USED FOR UNKNOWN INDICATION
     Route: 048
  8. LASIX [Concomitant]
     Indication: PRODUCT USED FOR UNKNOWN INDICATION
     Route: 048
  9. MOVICOL [Concomitant]
     Indication: PRODUCT USED FOR UNKNOWN INDICATION
     Route: 048

REACTIONS (2)
  - International normalised ratio increased [Recovered/Resolved]
  - Inappropriate schedule of drug administration [Unknown]
